FAERS Safety Report 7381781-4 (Version None)
Quarter: 2011Q1

REPORT INFORMATION
  Report Type: 
  Country: None (occurrence: None)
  Receive Date: 20110329
  Receipt Date: 20101021
  Transmission Date: 20110831
  Serious: Yes (Hospitalization)
  Sender: FDA-Public Use
  Company Number: US-BAYER-201018942NA

PATIENT
  Sex: Female
  Weight: 90 kg

DRUGS (7)
  1. PRENATAL VITAMINS [Concomitant]
     Indication: PREGNANCY
     Dates: start: 20080201, end: 20081001
  2. PREVACID [Concomitant]
  3. UNCODEABLE ^UNCLASSIFIABLE^ [Concomitant]
     Indication: PAIN
  4. PERCOCET [Concomitant]
  5. YASMIN [Suspect]
     Indication: CONTRACEPTION
     Route: 048
     Dates: start: 20071009, end: 20080220
  6. PHENERGAN [Concomitant]
  7. UNCODEABLE ^UNCLASSIFIABLE^ [Concomitant]
     Indication: HEADACHE

REACTIONS (5)
  - PREGNANCY ON ORAL CONTRACEPTIVE [None]
  - PAIN IN EXTREMITY [None]
  - DYSPNOEA [None]
  - CHEST PAIN [None]
  - PULMONARY EMBOLISM [None]
